FAERS Safety Report 18045439 (Version 4)
Quarter: 2022Q1

REPORT INFORMATION
  Report Type: Spontaneous
  Country: JP (occurrence: JP)
  Receive Date: 20200720
  Receipt Date: 20220124
  Transmission Date: 20220424
  Serious: Yes (Hospitalization, Other)
  Sender: FDA-Public Use
  Company Number: JP-TEVA-2020-JP-1803959

PATIENT
  Age: 80 Year
  Sex: Male
  Weight: 52 kg

DRUGS (15)
  1. AZILECT [Suspect]
     Active Substance: RASAGILINE MESYLATE
     Indication: Parkinson^s disease
     Dosage: .5 MILLIGRAM DAILY;
     Route: 048
     Dates: start: 20190917, end: 20191009
  2. AZILECT [Suspect]
     Active Substance: RASAGILINE MESYLATE
     Dosage: 1 MILLIGRAM DAILY;
     Route: 048
     Dates: start: 20191010, end: 20191111
  3. AZILECT [Suspect]
     Active Substance: RASAGILINE MESYLATE
     Dosage: .5 MILLIGRAM DAILY;
     Route: 048
     Dates: start: 20191112, end: 20200309
  4. AZILECT [Suspect]
     Active Substance: RASAGILINE MESYLATE
     Dosage: 1 MILLIGRAM DAILY;
     Route: 048
     Dates: start: 20200310, end: 20200428
  5. AZILECT [Suspect]
     Active Substance: RASAGILINE MESYLATE
     Dosage: .5 MILLIGRAM DAILY;
     Route: 048
     Dates: start: 20200429, end: 20200616
  6. OLMESARTAN [Concomitant]
     Active Substance: OLMESARTAN
     Dates: start: 20190402
  7. CARBIDOPA\LEVODOPA [Concomitant]
     Active Substance: CARBIDOPA\LEVODOPA
     Dates: start: 20180213
  8. SODIUM PICOSULFATE [Concomitant]
     Active Substance: SODIUM PICOSULFATE
  9. TADALAFIL [Concomitant]
     Active Substance: TADALAFIL
     Dates: start: 20151215
  10. VESICARE [Concomitant]
     Active Substance: SOLIFENACIN SUCCINATE
     Dates: start: 20160209
  11. MIRABEGRON [Concomitant]
     Active Substance: MIRABEGRON
     Dates: start: 20160930
  12. TAMSULOSIN HYDROCHLORIDE [Concomitant]
     Active Substance: TAMSULOSIN HYDROCHLORIDE
     Dates: start: 20170316, end: 20190929
  13. NEXIUM [Concomitant]
     Active Substance: ESOMEPRAZOLE MAGNESIUM
     Dates: start: 20160224
  14. TULOBUTEROL [Concomitant]
     Active Substance: TULOBUTEROL
     Dosage: TAPE (INCLUDING POULTICE)
     Dates: start: 20100603
  15. AMBROXOL HYDROCHLORIDE [Concomitant]
     Active Substance: AMBROXOL HYDROCHLORIDE
     Dates: start: 20161027

REACTIONS (3)
  - Prinzmetal angina [Unknown]
  - Blood pressure fluctuation [Unknown]
  - Parkinsonism [Unknown]

NARRATIVE: CASE EVENT DATE: 20191112
